FAERS Safety Report 6759079-4 (Version None)
Quarter: 2010Q2

REPORT INFORMATION
  Report Type: 
  Country: None (occurrence: None)
  Receive Date: 20100603
  Receipt Date: 20100524
  Transmission Date: 20101027
  Serious: Yes (Hospitalization, Other)
  Sender: FDA-Public Use
  Company Number: 2010AL003053

PATIENT
  Age: 10 Month
  Sex: Female

DRUGS (1)
  1. TRAMADOL HCL [Suspect]

REACTIONS (12)
  - ACIDOSIS [None]
  - ASPARTATE AMINOTRANSFERASE INCREASED [None]
  - DIARRHOEA [None]
  - DRUG SCREEN POSITIVE [None]
  - GRAND MAL CONVULSION [None]
  - IRON DEFICIENCY ANAEMIA [None]
  - IRRITABILITY [None]
  - OVERDOSE [None]
  - RESPIRATORY DISORDER [None]
  - SINUSITIS [None]
  - TARDIVE DYSKINESIA [None]
  - TONIC CONVULSION [None]
